FAERS Safety Report 13505159 (Version 2)
Quarter: 2017Q2

REPORT INFORMATION
  Report Type: Report from Study
  Country: DE (occurrence: DE)
  Receive Date: 20170502
  Receipt Date: 20170512
  Transmission Date: 20170830
  Serious: No
  Sender: FDA-Public Use
  Company Number: DE-OTSUKA-2017_009637

PATIENT
  Age: 46 Year
  Sex: Male
  Weight: 77 kg

DRUGS (30)
  1. BLINDED *PLACEBO [Suspect]
     Active Substance: INVESTIGATIONAL PRODUCT
     Dosage: PLACEBO, QD (IN MORNING)
     Route: 048
     Dates: start: 20150208, end: 20150305
  2. BLINDED TOLVAPTAN [Suspect]
     Active Substance: TOLVAPTAN
     Dosage: 30 MG, QD (IN EVENING) (TITRATION)
     Route: 048
     Dates: start: 20150314, end: 20150316
  3. BLINDED *PLACEBO [Suspect]
     Active Substance: INVESTIGATIONAL PRODUCT
     Dosage: 90 MG, QD (IN MORNING) (TITRATION)
     Route: 048
     Dates: start: 20150317, end: 20150319
  4. AMLODIPINE [Concomitant]
     Active Substance: AMLODIPINE BESYLATE
     Indication: HYPERTENSION
     Dosage: 10 MG, QD (HALF DOSE)
     Route: 048
     Dates: start: 201208
  5. BLINDED *PLACEBO [Suspect]
     Active Substance: INVESTIGATIONAL PRODUCT
     Indication: CONGENITAL CYSTIC KIDNEY DISEASE
     Dosage: 90 MG, QD (IN MORNING) (RANDOMIZATION)
     Route: 048
     Dates: start: 20150408, end: 20151211
  6. BLINDED TOLVAPTAN [Suspect]
     Active Substance: TOLVAPTAN
     Dosage: PLACEBO, QD (IN MORNING)
     Route: 048
     Dates: start: 20150208, end: 20150305
  7. BLINDED TOLVAPTAN [Suspect]
     Active Substance: TOLVAPTAN
     Dosage: 30 MG, QD (IN MORNING) (TITRATION)
     Route: 048
     Dates: start: 20150306, end: 20150309
  8. BLINDED TOLVAPTAN [Suspect]
     Active Substance: TOLVAPTAN
     Dosage: 60 MG, QD (IN MORNING) (TITRATION)
     Route: 048
     Dates: start: 20150314, end: 20150316
  9. BLINDED *PLACEBO [Suspect]
     Active Substance: INVESTIGATIONAL PRODUCT
     Dosage: 30 MG, QD (IN EVENING) (TITRATION)
     Route: 048
     Dates: start: 20150314, end: 20150316
  10. BLINDED TOLVAPTAN [Suspect]
     Active Substance: TOLVAPTAN
     Dosage: 30 MG, QD (IN EVENING) (RANDOMIZATION)
     Route: 048
     Dates: start: 20150408, end: 20151211
  11. BLINDED TOLVAPTAN [Suspect]
     Active Substance: TOLVAPTAN
     Dosage: 90 MG, QD (IN MORNING) (TITRATION)
     Route: 048
     Dates: start: 20150317, end: 20150319
  12. BLINDED TOLVAPTAN [Suspect]
     Active Substance: TOLVAPTAN
     Dosage: 90 MG, QD (IN MORNING) (RUN-IN)
     Route: 048
     Dates: start: 20150320, end: 20150407
  13. BLINDED TOLVAPTAN [Suspect]
     Active Substance: TOLVAPTAN
     Dosage: 15 MG, QD (IN EVENING) (TITRATION)
     Route: 048
     Dates: start: 20150310, end: 20150313
  14. BLINDED *PLACEBO [Suspect]
     Active Substance: INVESTIGATIONAL PRODUCT
     Dosage: 60 MG, QD (IN MORNING) (TITRATION)
     Route: 048
     Dates: start: 20150314, end: 20150316
  15. BLINDED TOLVAPTAN [Suspect]
     Active Substance: TOLVAPTAN
     Dosage: 30 MG, QD (IN EVENING) (RUN-IN)
     Route: 048
     Dates: start: 20150320, end: 20150407
  16. BLINDED TOLVAPTAN [Suspect]
     Active Substance: TOLVAPTAN
     Dosage: 15 MG, QD (IN EVENING) (TITRATION)
     Route: 048
     Dates: start: 20150306, end: 20150309
  17. BLINDED *PLACEBO [Suspect]
     Active Substance: INVESTIGATIONAL PRODUCT
     Dosage: 45 MG, QD (IN MORNING) (TITRATION)
     Route: 048
     Dates: start: 20150310, end: 20150313
  18. BLINDED *PLACEBO [Suspect]
     Active Substance: INVESTIGATIONAL PRODUCT
     Dosage: 15 MG, QD (IN EVENING) (TITRATION)
     Route: 048
     Dates: start: 20150310, end: 20150313
  19. BLINDED *PLACEBO [Suspect]
     Active Substance: INVESTIGATIONAL PRODUCT
     Dosage: 30 MG, QD (IN EVENING) (TITRATION)
     Route: 048
     Dates: start: 20150317, end: 20150319
  20. BENALAPRIL [Concomitant]
     Active Substance: ENALAPRIL MALEATE
     Indication: HYPERTENSION
     Dosage: 20 MG, BID (HALF DOSE)
     Route: 048
     Dates: start: 2010
  21. BLINDED TOLVAPTAN [Suspect]
     Active Substance: TOLVAPTAN
     Indication: CONGENITAL CYSTIC KIDNEY DISEASE
     Dosage: 90 MG, QD (IN MORNING) (RANDOMIZATION)
     Route: 048
     Dates: start: 20150408, end: 20151211
  22. BLINDED *PLACEBO [Suspect]
     Active Substance: INVESTIGATIONAL PRODUCT
     Dosage: 30 MG, QD (IN EVENING) (RANDOMIZATION)
     Route: 048
     Dates: start: 20150408, end: 20151211
  23. BLINDED TOLVAPTAN [Suspect]
     Active Substance: TOLVAPTAN
     Dosage: PLACEBO, QD (IN EVENING)
     Route: 048
     Dates: start: 20150208, end: 20150305
  24. BLINDED *PLACEBO [Suspect]
     Active Substance: INVESTIGATIONAL PRODUCT
     Dosage: 30 MG, QD (IN MORNING) (TITRATION)
     Route: 048
     Dates: start: 20150306, end: 20150309
  25. BLINDED *PLACEBO [Suspect]
     Active Substance: INVESTIGATIONAL PRODUCT
     Dosage: 30 MG, QD (IN EVENING) (RUN-IN)
     Route: 048
     Dates: start: 20150320, end: 20150407
  26. BLINDED *PLACEBO [Suspect]
     Active Substance: INVESTIGATIONAL PRODUCT
     Dosage: PLACEBO, QD (IN EVENING)
     Route: 048
     Dates: start: 20150208, end: 20150305
  27. BLINDED *PLACEBO [Suspect]
     Active Substance: INVESTIGATIONAL PRODUCT
     Dosage: 15 MG, QD (IN EVENING) (TITRATION)
     Route: 048
     Dates: start: 20150306, end: 20150309
  28. BLINDED TOLVAPTAN [Suspect]
     Active Substance: TOLVAPTAN
     Dosage: 45 MG, QD (IN MORNING) (TITRATION)
     Route: 048
     Dates: start: 20150310, end: 20150313
  29. BLINDED TOLVAPTAN [Suspect]
     Active Substance: TOLVAPTAN
     Dosage: 30 MG, QD (IN EVENING) (TITRATION)
     Route: 048
     Dates: start: 20150317, end: 20150319
  30. BLINDED *PLACEBO [Suspect]
     Active Substance: INVESTIGATIONAL PRODUCT
     Dosage: 90 MG, QD (IN MORNING) (RUN-IN)
     Route: 048
     Dates: start: 20150320, end: 20150407

REACTIONS (2)
  - Aspartate aminotransferase increased [Recovered/Resolved]
  - Alanine aminotransferase increased [Recovered/Resolved]

NARRATIVE: CASE EVENT DATE: 20151207
